FAERS Safety Report 9094003 (Version 1)
Quarter: 2013Q1

REPORT INFORMATION
  Report Type: Spontaneous
  Country: US (occurrence: None)
  Receive Date: 20130122
  Receipt Date: 20130122
  Transmission Date: 20140127
  Serious: Yes (Other)
  Sender: FDA-Public Use
  Company Number: 2013-00021

PATIENT
  Sex: Female

DRUGS (1)
  1. UNSPECIFIED ZICAM PRODUCT [Suspect]

REACTIONS (2)
  - Swollen tongue [None]
  - Dysphagia [None]
